FAERS Safety Report 8846506 (Version 1)
Quarter: 2012Q4

REPORT INFORMATION
  Report Type: 
  Country: US (occurrence: US)
  Receive Date: 20121017
  Receipt Date: 20121017
  Transmission Date: 20130627
  Serious: No
  Sender: FDA-Public Use
  Company Number: US-GLAXOSMITHKLINE-A0971064A

PATIENT
  Age: 55 Year
  Sex: Female

DRUGS (3)
  1. CEFTIN [Suspect]
     Indication: SINUSITIS
     Dates: start: 201202, end: 20120302
  2. VILAZODONE [Suspect]
     Indication: DEPRESSION
     Dosage: 10MG Per day
     Dates: start: 20120118, end: 20120124
  3. SYNTHROID [Concomitant]

REACTIONS (3)
  - Diarrhoea [Not Recovered/Not Resolved]
  - Abdominal pain [Unknown]
  - Pain [Unknown]
